FAERS Safety Report 5781667-2 (Version None)
Quarter: 2008Q2

REPORT INFORMATION
  Report Type: 
  Country: None (occurrence: None)
  Receive Date: 20080623
  Receipt Date: 20071008
  Transmission Date: 20081010
  Serious: No
  Sender: FDA-Public Use
  Company Number: US-ASTRAZENECA-2007UW03931

PATIENT
  Age: 931 Month
  Sex: Female
  Weight: 68 kg

DRUGS (3)
  1. RHINOCORT [Suspect]
     Indication: RHINITIS ALLERGIC
     Dosage: 30 METER SPRAY/UNIT
     Route: 045
     Dates: start: 20070201
  2. RHINOCORT [Suspect]
     Indication: POSTNASAL DRIP
     Dosage: 30 METER SPRAY/UNIT
     Route: 045
     Dates: start: 20070201
  3. THYROID TAB [Concomitant]

REACTIONS (4)
  - BRONCHOSPASM [None]
  - COUGH [None]
  - PAIN [None]
  - SPUTUM DISCOLOURED [None]
